FAERS Safety Report 17880370 (Version 1)
Quarter: 2020Q2

REPORT INFORMATION
  Report Type: Spontaneous
  Country: JP (occurrence: JP)
  Receive Date: 20200610
  Receipt Date: 20200610
  Transmission Date: 20200714
  Serious: Yes (Hospitalization, Other)
  Sender: FDA-Public Use
  Company Number: JP-STRIDES ARCOLAB LIMITED-2020SP006815

PATIENT
  Age: 30 Year
  Sex: Male
  Weight: 62 kg

DRUGS (9)
  1. VANCOMYCIN [Suspect]
     Active Substance: VANCOMYCIN
     Indication: STAPHYLOCOCCAL INFECTION
     Dosage: 1 GRAM, EVERY 12 HRS
     Route: 065
  2. PIPERACILLIN/TAZOBACTAM [Interacting]
     Active Substance: PIPERACILLIN SODIUM\TAZOBACTAM SODIUM
     Indication: BACTERIAL INFECTION
     Dosage: 4.5 GRAM, EVERY 8 HOURS
     Route: 065
  3. VANCOMYCIN [Interacting]
     Active Substance: VANCOMYCIN
     Dosage: 1 GRAM, EVERY 6 HRS
     Route: 065
  4. VANCOMYCIN [Interacting]
     Active Substance: VANCOMYCIN
     Indication: EMPYEMA
     Dosage: 1 GRAM, EVERY 8 HOURS
     Route: 065
  5. FLUOROURACIL. [Concomitant]
     Active Substance: FLUOROURACIL
     Indication: TONGUE NEOPLASM
     Dosage: UNK, CYCLICAL
     Route: 065
  6. CETUXIMAB. [Concomitant]
     Active Substance: CETUXIMAB
     Indication: TONGUE NEOPLASM
     Dosage: UNK, CYCLICAL
     Route: 065
  7. PIPERACILLIN/TAZOBACTAM [Interacting]
     Active Substance: PIPERACILLIN SODIUM\TAZOBACTAM SODIUM
     Indication: BACTERIAL INFECTION
  8. LOXOPROFEN [Suspect]
     Active Substance: LOXOPROFEN
     Indication: PROCEDURAL PAIN
     Dosage: 60 MILLIGRAM, EVERY 12 HRS
     Route: 065
  9. CISPLATIN. [Suspect]
     Active Substance: CISPLATIN
     Indication: TONGUE NEOPLASM
     Dosage: 80 MILLIGRAM/SQ. METER, CYCLICAL, EVERY 4 WEEKS
     Route: 065

REACTIONS (3)
  - Acute kidney injury [Recovered/Resolved]
  - Drug interaction [Unknown]
  - Drug level increased [Recovered/Resolved]
